FAERS Safety Report 9851875 (Version 4)
Quarter: 2014Q1

REPORT INFORMATION
  Report Type: Report from Study
  Country: TH (occurrence: TH)
  Receive Date: 20140129
  Receipt Date: 20140321
  Transmission Date: 20141002
  Serious: Yes (Hospitalization)
  Sender: FDA-Public Use
  Company Number: TH-ROCHE-1190680

PATIENT
  Age: 50 Year
  Sex: Female
  Weight: 55.8 kg

DRUGS (16)
  1. OBINUTUZUMAB [Suspect]
     Indication: DIFFUSE LARGE B-CELL LYMPHOMA
     Dosage: VOLUME OF LAST OBINUTUZUMAB TAKEN WAS 1000 ML AND DOSE CONCENTRATION OF LAST OBINUTUZUMAB TAKEN WAS
     Route: 042
     Dates: start: 20121220
  2. CYCLOPHOSPHAMIDE [Suspect]
     Indication: DIFFUSE LARGE B-CELL LYMPHOMA
     Dosage: DOSE OF LAST CYCLOPHOSPHAMIDE TAKEN WAS 826.5 MG ON 05/APR/2013
     Route: 042
     Dates: start: 20121221
  3. CYCLOPHOSPHAMIDE [Suspect]
     Dosage: DOSE REDUCED.
     Route: 042
  4. DOXORUBICIN [Suspect]
     Indication: DIFFUSE LARGE B-CELL LYMPHOMA
     Dosage: DOSE OF LAST DOXORUBICIN TAKEN WAS 55 MG ON 05/APR/2013
     Route: 042
     Dates: start: 20121221
  5. DOXORUBICIN [Suspect]
     Dosage: DOSE REDUCED.
     Route: 042
  6. VINCRISTINE [Suspect]
     Indication: DIFFUSE LARGE B-CELL LYMPHOMA
     Dosage: DOSE OF LAST VINCRISTINE TAKEN: 2 MG ON 05/APR/2013
     Route: 042
     Dates: start: 20121221
  7. PREDNISONE [Suspect]
     Indication: DIFFUSE LARGE B-CELL LYMPHOMA
     Dosage: DOSE OF LAST PREDNISONE: 100 MG ON 05/APR/2013
     Route: 065
     Dates: start: 20121221
  8. PARACETAMOL [Concomitant]
     Indication: PREMEDICATION
     Route: 065
     Dates: start: 20121120, end: 20130523
  9. BENADRYL (THAILAND) [Concomitant]
     Indication: PREMEDICATION
     Route: 065
     Dates: start: 20121220, end: 20130523
  10. DEXAMETHASONE [Concomitant]
     Indication: PREMEDICATION
     Route: 065
     Dates: start: 20121220, end: 20130523
  11. DEXAMETHASONE [Concomitant]
     Route: 065
     Dates: start: 20121221, end: 20130523
  12. ONDANSETRON [Concomitant]
     Indication: PREMEDICATION
     Route: 065
     Dates: start: 20121221, end: 20130523
  13. AIR-X [Concomitant]
     Indication: PROPHYLAXIS AGAINST GASTROINTESTINAL ULCER
     Route: 065
     Dates: start: 20121219, end: 20130627
  14. MIRACID [Concomitant]
     Indication: PROPHYLAXIS AGAINST GASTROINTESTINAL ULCER
     Route: 065
     Dates: start: 20121219, end: 20130627
  15. ACYCLOVIR [Concomitant]
     Indication: HERPES SIMPLEX
     Route: 065
     Dates: start: 20130109, end: 20130926
  16. ALUM MILK [Concomitant]
     Indication: GASTRIC ULCER
     Route: 065
     Dates: start: 20120626

REACTIONS (2)
  - Febrile neutropenia [Recovered/Resolved]
  - Neutropenia [Recovered/Resolved]
